FAERS Safety Report 23026584 (Version 2)
Quarter: 2023Q4

REPORT INFORMATION
  Report Type: Spontaneous
  Country: US (occurrence: US)
  Receive Date: 20231004
  Receipt Date: 20231117
  Transmission Date: 20240110
  Serious: Yes (Hospitalization)
  Sender: FDA-Public Use
  Company Number: US-CTI BIOPHARMA-2023US04105

PATIENT

DRUGS (3)
  1. VONJO [Suspect]
     Active Substance: PACRITINIB
     Indication: Chronic myeloid leukaemia
     Dosage: 200 MG, BID
     Route: 048
     Dates: start: 20230414
  2. PONATINIB [Concomitant]
     Active Substance: PONATINIB
  3. GABAPENTIN [Concomitant]
     Active Substance: GABAPENTIN

REACTIONS (3)
  - Myocardial infarction [Not Recovered/Not Resolved]
  - General physical health deterioration [Unknown]
  - Cell marker [Not Recovered/Not Resolved]

NARRATIVE: CASE EVENT DATE: 20230901
